FAERS Safety Report 17999667 (Version 1)
Quarter: 2020Q3

REPORT INFORMATION
  Report Type: Spontaneous
  Country: GB (occurrence: GB)
  Receive Date: 20200709
  Receipt Date: 20200709
  Transmission Date: 20201103
  Serious: Yes (Other)
  Sender: FDA-Public Use
  Company Number: GB-ROCHE-2638755

PATIENT
  Sex: Female

DRUGS (1)
  1. XOLAIR [Suspect]
     Active Substance: OMALIZUMAB
     Indication: ASTHMA
     Dosage: STARTED 8 YEARS AGO
     Route: 058

REACTIONS (1)
  - Coronavirus test positive [Recovered/Resolved]

NARRATIVE: CASE EVENT DATE: 202003
